FAERS Safety Report 17932980 (Version 1)
Quarter: 2020Q2

REPORT INFORMATION
  Report Type: Spontaneous
  Country: IT (occurrence: IT)
  Receive Date: 20200624
  Receipt Date: 20200624
  Transmission Date: 20200714
  Serious: Yes (Other)
  Sender: FDA-Public Use
  Company Number: IT-AUROBINDO-AUR-APL-2020-029647

PATIENT
  Age: 16 Year
  Sex: Female

DRUGS (1)
  1. SODIUM VALPROATE [Suspect]
     Active Substance: VALPROATE SODIUM
     Indication: GENERALISED TONIC-CLONIC SEIZURE
     Dosage: 600 MILLIGRAM, ONCE A DAY
     Route: 065

REACTIONS (3)
  - Alopecia [Unknown]
  - Ovarian cyst [Recovered/Resolved]
  - Weight increased [Unknown]
